FAERS Safety Report 14889888 (Version 1)
Quarter: 2018Q2

REPORT INFORMATION
  Report Type: Spontaneous
  Country: US (occurrence: US)
  Receive Date: 20180514
  Receipt Date: 20180514
  Transmission Date: 20180711
  Serious: Yes (Other)
  Sender: FDA-Public Use
  Company Number: US-TEVA-2018-US-890731

PATIENT
  Sex: Female

DRUGS (1)
  1. PROGESTERONE. [Suspect]
     Active Substance: PROGESTERONE
     Route: 065

REACTIONS (1)
  - Uterine cancer [Unknown]

NARRATIVE: CASE EVENT DATE: 1972
